FAERS Safety Report 15349414 (Version 3)
Quarter: 2018Q4

REPORT INFORMATION
  Report Type: Spontaneous
  Country: US (occurrence: US)
  Receive Date: 20180904
  Receipt Date: 20181115
  Transmission Date: 20190204
  Serious: Yes (Hospitalization, Other)
  Sender: FDA-Public Use
  Company Number: US-DSJP-DSU-2017-139353

PATIENT

DRUGS (1)
  1. BENICAR [Suspect]
     Active Substance: OLMESARTAN MEDOXOMIL
     Indication: PRODUCT USED FOR UNKNOWN INDICATION
     Dosage: 20 MG, QD
     Route: 048
     Dates: start: 20131203

REACTIONS (5)
  - Gastric ulcer [Unknown]
  - Sprue-like enteropathy [Unknown]
  - Diaphragmatic hernia [Unknown]
  - Haemorrhoids [Unknown]
  - Constipation [Unknown]

NARRATIVE: CASE EVENT DATE: 20140807
